FAERS Safety Report 7795915-0 (Version None)
Quarter: 2011Q4

REPORT INFORMATION
  Report Type: 
  Country: None (occurrence: None)
  Receive Date: 20111004
  Receipt Date: 20110922
  Transmission Date: 20120403
  Serious: Yes (Hospitalization, Other)
  Sender: FDA-Public Use
  Company Number: US-ELI_LILLY_AND_COMPANY-US201109007166

PATIENT
  Sex: Female

DRUGS (24)
  1. OXYTROL [Concomitant]
     Indication: INCONTINENCE
     Dosage: 1 DF, 2/W
  2. ZEGERID [Concomitant]
     Dosage: 40 MG, QD
  3. COREG [Concomitant]
     Indication: CARDIAC DISORDER
     Dosage: 3.125 MG, BID
  4. DIGOXIN [Concomitant]
     Indication: HEART RATE IRREGULAR
     Dosage: 1 DF, QD
  5. MILK OF MAGNESIA TAB [Concomitant]
     Indication: CONSTIPATION
  6. LISINOPRIL [Concomitant]
     Indication: CARDIAC DISORDER
     Dosage: 1 DF, QD
  7. GUAIFENESIN [Concomitant]
     Indication: WHEEZING
  8. LASIX [Concomitant]
     Dosage: 20 MG, QD
  9. HYDROCODONE [Concomitant]
     Indication: PAIN
     Dosage: 5 MG, BID
  10. MIRAPEX [Concomitant]
     Dosage: 0.25 MG, BID
  11. COUMADIN [Concomitant]
     Indication: ANTICOAGULANT THERAPY
     Dosage: 7.5 MG, WEEKLY (1/W)
  12. ALBUTEROL SULFATE [Concomitant]
     Indication: WHEEZING
     Dosage: UNK, PRN
  13. BENEFIBER [Concomitant]
     Indication: DIARRHOEA
     Dosage: UNK, QD
  14. EFFEXOR [Concomitant]
     Dosage: 75 MG, BID
  15. FORTEO [Suspect]
     Indication: OSTEOPOROSIS
     Dosage: 20 UG, QD
     Dates: start: 20060301, end: 20070901
  16. IMODIUM [Concomitant]
     Indication: DIARRHOEA
  17. ACIDOPHILUS [Concomitant]
     Dosage: UNK, QD
  18. VIACTIV                            /00751501/ [Concomitant]
     Dosage: 500 MG, BID
  19. RESTASIS [Concomitant]
     Indication: DRY EYE
     Dosage: 1 DF, QD
  20. HYDROCORTISONE [Concomitant]
     Indication: HAEMORRHOIDS
     Dosage: 1 DF, PRN
  21. CALCITONIN SALMON [Concomitant]
     Dosage: 1 DF, QD
  22. GLUCOSAMINE CHONDROITIN [Concomitant]
     Dosage: 2 DF, BID
  23. EXELON [Concomitant]
     Indication: DEMENTIA
     Dosage: 9.5 MG, QD
  24. XANAX [Concomitant]
     Dosage: 5 MG, QD

REACTIONS (7)
  - ASPIRATION TRACHEAL [None]
  - FEMUR FRACTURE [None]
  - PNEUMONIA ASPIRATION [None]
  - HAEMORRHAGE [None]
  - VERTEBROPLASTY [None]
  - DIVERTICULITIS [None]
  - BLADDER NECK SUSPENSION [None]
